FAERS Safety Report 8621776-3 (Version None)
Quarter: 2012Q3

REPORT INFORMATION
  Report Type: 
  Country: None (occurrence: None)
  Receive Date: 20120821
  Receipt Date: 20120821
  Transmission Date: 20120928
  Serious: Yes (Other)
  Sender: FDA-Public Use
  Company Number: None

PATIENT
  Sex: Female

DRUGS (1)
  1. AVONEX [Suspect]
     Indication: MULTIPLE SCLEROSIS
     Dosage: 30 MCG WEEKLY IM
     Route: 030
     Dates: start: 20110611, end: 20110730

REACTIONS (4)
  - MOVEMENT DISORDER [None]
  - PYREXIA [None]
  - LETHARGY [None]
  - CHILLS [None]
